FAERS Safety Report 6110661-7 (Version None)
Quarter: 2009Q1

REPORT INFORMATION
  Report Type: 
  Country: None (occurrence: None)
  Receive Date: 20090310
  Receipt Date: 20090226
  Transmission Date: 20090719
  Serious: Yes (Other)
  Sender: FDA-Public Use
  Company Number: US-JNJCH-2009005726

PATIENT
  Sex: Male

DRUGS (1)
  1. DESITIN CREAMY DIAPER RASH [Suspect]
     Indication: OFF LABEL USE
     Dosage: TEXT:UNSPECIFIED
     Route: 061

REACTIONS (2)
  - GLUCOSE URINE PRESENT [None]
  - OFF LABEL USE [None]
